FAERS Safety Report 7733331-8 (Version None)
Quarter: 2011Q3

REPORT INFORMATION
  Report Type: 
  Country: None (occurrence: None)
  Receive Date: 20110907
  Receipt Date: 20110811
  Transmission Date: 20111222
  Serious: Yes (Death)
  Sender: FDA-Public Use
  Company Number: US-ASTRAZENECA-2011SE47721

PATIENT
  Age: 20300 Day
  Sex: Female

DRUGS (7)
  1. ALBUTEROL SULFATE AUTOHALER [Concomitant]
     Indication: CHRONIC OBSTRUCTIVE PULMONARY DISEASE
     Dosage: 2 PUFFS EVERY 4 HOURS
     Route: 055
  2. VANDETANIB [Suspect]
     Indication: THYROID CANCER
     Route: 048
     Dates: start: 20110719
  3. SPIRIVA [Concomitant]
     Indication: CHRONIC OBSTRUCTIVE PULMONARY DISEASE
     Route: 055
  4. LEXAPRO [Concomitant]
     Indication: DEPRESSION
     Route: 048
  5. LEVOTHYROXINE SODIUM [Concomitant]
     Indication: HYPOTHYROIDISM
     Route: 048
  6. TEMAZEPAM [Concomitant]
     Indication: INSOMNIA
     Route: 048
  7. VICODIN [Concomitant]
     Indication: PAIN
     Dosage: 5/500 MG EVERY 6 HOURS
     Route: 048

REACTIONS (1)
  - RESPIRATORY FAILURE [None]
